FAERS Safety Report 21693952 (Version 3)
Quarter: 2023Q1

REPORT INFORMATION
  Report Type: Spontaneous
  Country: BR (occurrence: BR)
  Receive Date: 20221207
  Receipt Date: 20230102
  Transmission Date: 20230418
  Serious: Yes (Other)
  Sender: FDA-Public Use
  Company Number: BR-KOREA IPSEN Pharma-2022-32871

PATIENT
  Age: 55 Year
  Sex: Female
  Weight: 80 kg

DRUGS (5)
  1. DYSPORT [Suspect]
     Active Substance: ABOBOTULINUMTOXINA
     Indication: Skin procedural complication
     Dosage: FRONTAL10U, CORRUGATORS14UI, PROCERUS 6U, ORBICULARIS OCULI 10U, NASAL 1U, ORBICULARIS LIP 1U, MENTU
     Route: 030
     Dates: start: 20221122, end: 20221122
  2. IBUPROFEN [Concomitant]
     Active Substance: IBUPROFEN
  3. DIPYRONE [Concomitant]
     Active Substance: DIPYRONE
  4. CAPTOPRIL [Concomitant]
     Active Substance: CAPTOPRIL
  5. MORPHINE [Concomitant]
     Active Substance: MORPHINE

REACTIONS (5)
  - Migraine [Not Recovered/Not Resolved]
  - Headache [Recovered/Resolved]
  - Headache [Unknown]
  - Musculoskeletal discomfort [Unknown]
  - Hypertension [Unknown]

NARRATIVE: CASE EVENT DATE: 20221124
